FAERS Safety Report 9361824 (Version 1)
Quarter: 2013Q2

REPORT INFORMATION
  Report Type: Spontaneous
  Country: US (occurrence: US)
  Receive Date: 20130621
  Receipt Date: 20130621
  Transmission Date: 20140414
  Serious: Yes (Hospitalization)
  Sender: FDA-Public Use
  Company Number: US-GLAXOSMITHKLINE-A0753977A

PATIENT
  Age: 46 Year
  Sex: Male
  Weight: 146.8 kg

DRUGS (6)
  1. AVANDIA [Suspect]
     Indication: DIABETES MELLITUS
     Dosage: 4MG TWICE PER DAY
     Route: 048
     Dates: start: 20060515, end: 20080210
  2. DILTIAZEM [Concomitant]
  3. FELODIPINE [Concomitant]
  4. CRESTOR [Concomitant]
  5. METFORMIN [Concomitant]
  6. NAPROSYN [Concomitant]

REACTIONS (4)
  - Myocardial infarction [Unknown]
  - Cardiac failure congestive [Unknown]
  - Adverse event [Unknown]
  - Coronary artery disease [Unknown]
